FAERS Safety Report 17808283 (Version 1)
Quarter: 2020Q2

REPORT INFORMATION
  Report Type: Spontaneous
  Country: IT (occurrence: IT)
  Receive Date: 20200520
  Receipt Date: 20200520
  Transmission Date: 20200714
  Serious: Yes (Other)
  Sender: FDA-Public Use
  Company Number: IT-IGSA-SR10010226

PATIENT
  Age: 76 Year
  Sex: Female
  Weight: 60 kg

DRUGS (5)
  1. LAVENTAIR [Concomitant]
     Indication: CHRONIC OBSTRUCTIVE PULMONARY DISEASE
     Dosage: 55/22 MG
     Route: 045
  2. PROLASTIN [Suspect]
     Active Substance: .ALPHA.1-PROTEINASE INHIBITOR HUMAN
     Dosage: 3000 MG, Q.WK.
     Route: 042
     Dates: start: 201904
  3. TOTALIP [Concomitant]
     Active Substance: ATORVASTATIN
     Indication: HYPERCHOLESTEROLAEMIA
     Dosage: 10 MG, QD
     Route: 048
  4. ELIQUIS [Concomitant]
     Active Substance: APIXABAN
     Indication: EMBOLISM
     Dosage: 2.5 MG, UNK
     Route: 048
  5. PROLASTIN [Suspect]
     Active Substance: .ALPHA.1-PROTEINASE INHIBITOR HUMAN
     Indication: ALPHA-1 ANTITRYPSIN DEFICIENCY
     Dosage: 3000 MG, Q.WK.
     Route: 042
     Dates: start: 20200421, end: 20200421

REACTIONS (5)
  - Bronchospasm [Recovered/Resolved]
  - Pruritus [Unknown]
  - Tachycardia [Recovered/Resolved]
  - Fatigue [Recovered/Resolved]
  - Tachycardia [Recovered/Resolved]

NARRATIVE: CASE EVENT DATE: 20200414
